FAERS Safety Report 23517896 (Version 5)
Quarter: 2025Q2

REPORT INFORMATION
  Report Type: Spontaneous
  Country: IN (occurrence: IN)
  Receive Date: 20240213
  Receipt Date: 20250624
  Transmission Date: 20250716
  Serious: Yes (Other)
  Sender: SANDOZ
  Company Number: IN-SANDOZ-SDZ2024IN013316

PATIENT
  Age: 51 Year
  Sex: Male

DRUGS (4)
  1. MYFORTIC [Suspect]
     Active Substance: MYCOPHENOLATE SODIUM
     Dosage: 540 MG, QD; 540 MG, OTHER (360MG (M) 180MG (N))
     Route: 048
  2. MYFORTIC [Suspect]
     Active Substance: MYCOPHENOLATE SODIUM
     Indication: Renal transplant
     Dosage: 720 MG, QD; 360 MG, BID (1-0-1)
     Route: 048
  3. TACROLIMUS [Suspect]
     Active Substance: TACROLIMUS
     Dosage: 1.5 MG, BID
     Route: 048
  4. TACROLIMUS [Suspect]
     Active Substance: TACROLIMUS
     Indication: Renal transplant
     Dosage: 5 MG, QD; 2.5 MG, BID (1.5MG (M) 1MG (N))
     Route: 048

REACTIONS (19)
  - Hypothyroidism [Unknown]
  - Transplant dysfunction [Unknown]
  - Toxicity to various agents [Unknown]
  - Focal segmental glomerulosclerosis [Unknown]
  - Abdominal distension [Unknown]
  - Gastritis [Unknown]
  - Duodenitis [Unknown]
  - Duodenitis [Unknown]
  - Pyrexia [Unknown]
  - Oedema [Unknown]
  - Weight decreased [Unknown]
  - Gastroenteritis [Unknown]
  - Hypertension [Unknown]
  - Diarrhoea [Unknown]
  - Decreased appetite [Unknown]
  - Blood pressure increased [Unknown]
  - Cough [Unknown]
  - Asymptomatic bacteriuria [Unknown]
  - Off label use [Unknown]

NARRATIVE: CASE EVENT DATE: 20240620
